FAERS Safety Report 24558835 (Version 3)
Quarter: 2025Q1

REPORT INFORMATION
  Report Type: Report from Study
  Country: US (occurrence: US)
  Receive Date: 20241029
  Receipt Date: 20250218
  Transmission Date: 20250408
  Serious: No
  Sender: SANDOZ
  Company Number: US-SANDOZ-SDZ2024US090112

PATIENT
  Age: 91 Year
  Sex: Female

DRUGS (1)
  1. CIMERLI [Suspect]
     Active Substance: RANIBIZUMAB-EQRN
     Indication: Neovascular age-related macular degeneration
     Dosage: 00.05 MG/KG(MILIGRAM/KILOGRAM), OTHER, QMO,,Q8 WEEKS OD AND Q14 WEEKS OS.
     Dates: start: 20241022

REACTIONS (3)
  - Accidental exposure to product [Unknown]
  - Exposure via skin contact [Unknown]
  - Product contamination [Unknown]

NARRATIVE: CASE EVENT DATE: 20241022
